FAERS Safety Report 8716504 (Version 2)
Quarter: 2013Q4

REPORT INFORMATION
  Report Type: Spontaneous
  Country: US (occurrence: US)
  Receive Date: 20120810
  Receipt Date: 20131101
  Transmission Date: 20140711
  Serious: No
  Sender: FDA-Public Use
  Company Number: US-009507513-1203USA03199

PATIENT
  Age: 28 Year
  Sex: Male

DRUGS (3)
  1. AZASITE [Suspect]
     Indication: DRY EYE
     Dosage: 2 DROPS, UNK
     Route: 047
     Dates: start: 20120203
  2. MINOCYCLINE [Concomitant]
  3. SYSTANE [Concomitant]

REACTIONS (1)
  - Pain [Not Recovered/Not Resolved]
